FAERS Safety Report 9375214 (Version 2)
Quarter: 2013Q3

REPORT INFORMATION
  Report Type: Report from Study
  Country: DE (occurrence: DE)
  Receive Date: 20130628
  Receipt Date: 20130710
  Transmission Date: 20140515
  Serious: Yes (Hospitalization)
  Sender: FDA-Public Use
  Company Number: DE-PFIZER INC-2010089542

PATIENT
  Age: 72 Year
  Sex: Male

DRUGS (7)
  1. SUTENT [Suspect]
     Indication: METASTATIC RENAL CELL CARCINOMA
     Dosage: 50 MG, 1X/DAY
     Route: 048
     Dates: start: 20100429
  2. SORAFENIB [Suspect]
     Dosage: 400 MG, 2X/DAY
     Route: 048
     Dates: start: 20100109, end: 20100406
  3. PANTOZOL [Concomitant]
     Dosage: 40 MG, 1X/DAY, (1-0-0)
     Dates: start: 20100715
  4. COSOPT AT [Concomitant]
     Dosage: 1-0-1 RIGHT EYE, 2X/DAY
  5. TRAVATAN AT [Concomitant]
     Dosage: 0-0-1 BOTH EYES, 1X/DAY
  6. NOVALGIN [Concomitant]
     Dosage: 30 GTT, 120 GH (1-1-1-1)
     Dates: start: 20100111
  7. ESIDREX [Concomitant]
     Dosage: 12.5 MG, (25 MG 1/2-0-0)
     Dates: start: 201006

REACTIONS (2)
  - Hypokalaemia [Recovered/Resolved]
  - Hyponatraemia [Recovered/Resolved]
